FAERS Safety Report 24031689 (Version 7)
Quarter: 2024Q4

REPORT INFORMATION
  Report Type: Spontaneous
  Country: CA (occurrence: CA)
  Receive Date: 20240629
  Receipt Date: 20241116
  Transmission Date: 20250115
  Serious: Yes (Hospitalization, Other)
  Sender: CELLTRION
  Company Number: CA-PFIZER INC-202400198743

PATIENT

DRUGS (4)
  1. INFLECTRA [Suspect]
     Active Substance: INFLIXIMAB-DYYB
     Indication: Colitis ulcerative
     Dosage: 10 MG/KG, CYCLIC (W 0, 2, 6 THEN EVERY 8 WEEKS)
     Route: 042
     Dates: start: 20240618
  2. INFLECTRA [Suspect]
     Active Substance: INFLIXIMAB-DYYB
     Indication: Crohn^s disease
     Dosage: 10 MG/KG, W 0, 2, 6 THEN EVERY 8 WEEKS
     Route: 042
     Dates: start: 20240712
  3. INFLECTRA [Suspect]
     Active Substance: INFLIXIMAB-DYYB
     Dosage: 600 MG, 6 WEEKS 5 DAYS (WEEK 6 INDUCTION) (10 MG/KG, W 0, 2, 6 THEN EVERY 8 WEEKS)
     Route: 042
     Dates: start: 20240828
  4. METHOTREXATE [Suspect]
     Active Substance: METHOTREXATE
     Dosage: UNK DOSE
     Dates: start: 20240617

REACTIONS (12)
  - Colectomy total [Not Recovered/Not Resolved]
  - Condition aggravated [Recovering/Resolving]
  - Arthralgia [Unknown]
  - Mouth ulceration [Unknown]
  - Anal fissure [Unknown]
  - Weight decreased [Unknown]
  - Abdominal pain [Unknown]
  - Eating disorder [Unknown]
  - Movement disorder [Unknown]
  - Mobility decreased [Unknown]
  - Off label use [Unknown]
  - Illness [Unknown]

NARRATIVE: CASE EVENT DATE: 20240101
